FAERS Safety Report 20143542 (Version 2)
Quarter: 2021Q4

REPORT INFORMATION
  Report Type: Other
  Country: CA (occurrence: CA)
  Receive Date: 20211203
  Receipt Date: 20211208
  Transmission Date: 20220304
  Serious: Yes (Hospitalization)
  Sender: FDA-Public Use
  Company Number: CA-APOTEX-2021AP045991

PATIENT
  Age: 85 Year
  Sex: Male

DRUGS (1)
  1. LEVETIRACETAM [Suspect]
     Active Substance: LEVETIRACETAM
     Indication: Neuropsychiatric symptoms
     Dosage: UNK
     Route: 065

REACTIONS (2)
  - Mood swings [Unknown]
  - Agitation [Unknown]
